FAERS Safety Report 4300982-2 (Version None)
Quarter: 2004Q1

REPORT INFORMATION
  Report Type: 
  Country: None (occurrence: None)
  Receive Date: 20040219
  Receipt Date: 20040210
  Transmission Date: 20041129
  Serious: Yes (Death)
  Sender: FDA-Public Use
  Company Number: 2004199350GB

PATIENT
  Sex: Female

DRUGS (2)
  1. DEPO-PROVERA [Suspect]
     Dosage: INTRAMUSCULAR
     Route: 030
  2. CO-PROXAMOL (DEXTROPROPOXYPHEE HYDROCHLORIDE) [Suspect]
     Indication: BACK PAIN
     Dosage: ORAL
     Route: 048
     Dates: end: 20031201

REACTIONS (1)
  - INTENTIONAL OVERDOSE [None]
